FAERS Safety Report 14019312 (Version 1)
Quarter: 2017Q3

REPORT INFORMATION
  Report Type: Spontaneous
  Country: US (occurrence: US)
  Receive Date: 20170928
  Receipt Date: 20170928
  Transmission Date: 20171128
  Serious: No
  Sender: FDA-Public Use
  Company Number: US-ENDO PHARMACEUTICALS INC-2017-000586

PATIENT
  Sex: Female

DRUGS (2)
  1. CHOLESTYRAMINE. [Suspect]
     Active Substance: CHOLESTYRAMINE
     Indication: ABDOMINAL DISCOMFORT
     Dosage: UNK UNK, UNKNOWN
     Route: 048
     Dates: start: 20170130
  2. CHOLESTYRAMINE. [Suspect]
     Active Substance: CHOLESTYRAMINE
     Dosage: UNK UNK, UNKNOWN
     Route: 048
     Dates: start: 20170130

REACTIONS (3)
  - Product taste abnormal [Unknown]
  - Off label use [Unknown]
  - Product odour abnormal [Unknown]
